FAERS Safety Report 7911189-1 (Version None)
Quarter: 2011Q4

REPORT INFORMATION
  Report Type: 
  Country: None (occurrence: None)
  Receive Date: 20111110
  Receipt Date: 20111110
  Transmission Date: 20120403
  Serious: Yes (Hospitalization, Other)
  Sender: FDA-Public Use
  Company Number: None

PATIENT
  Age: 78 Year
  Sex: Male

DRUGS (8)
  1. ISOSORBIDE MONONITRATE [Concomitant]
  2. FINASTERIDE [Concomitant]
  3. METFORMIN HCL [Concomitant]
  4. SIMVASTATIN [Concomitant]
  5. ONDANSETRON [Concomitant]
  6. REVLIMID [Suspect]
     Indication: MULTIPLE MYELOMA
     Dosage: REVLIMID 15 MG DAILY X21D/28D ORALLY
     Route: 048
     Dates: start: 20111014
  7. FAMOTIDINE [Concomitant]
  8. FENTANYL [Concomitant]

REACTIONS (4)
  - CARDIAC FAILURE [None]
  - HERPES ZOSTER [None]
  - VIRAL RASH [None]
  - MYOCARDIAL INFARCTION [None]
